FAERS Safety Report 6250621-9 (Version None)
Quarter: 2009Q2

REPORT INFORMATION
  Report Type: 
  Country: None (occurrence: None)
  Receive Date: 20090630
  Receipt Date: 20090622
  Transmission Date: 20091009
  Serious: Yes (Hospitalization, Disabling, Other)
  Sender: FDA-Public Use
  Company Number: BR-WYE-H09842709

PATIENT
  Sex: Male

DRUGS (11)
  1. RAPAMUNE [Suspect]
     Indication: PROPHYLAXIS AGAINST TRANSPLANT REJECTION
     Dosage: 9 ML ONCE DAILY AND THEN TAPER DURING THE STUDY
     Route: 048
     Dates: start: 20030611
  2. PREDNISONE TAB [Suspect]
     Indication: PROPHYLAXIS AGAINST TRANSPLANT REJECTION
     Dosage: 40 MG DAILY AND TAPERED DURING THE COURSE OF THE STUDY
     Route: 048
     Dates: start: 20030610
  3. METHYLPREDNISOLONE [Concomitant]
     Indication: PROPHYLAXIS AGAINST TRANSPLANT REJECTION
     Route: 042
     Dates: start: 20030611, end: 20030611
  4. RANITIDINE [Concomitant]
     Dosage: UNSPECIFIED
     Dates: start: 20030610, end: 20030924
  5. ATENOLOL [Concomitant]
     Dosage: UNSPECIFIED
     Dates: start: 20030614, end: 20031203
  6. SULFAMETHOXAZOLE AND TRIMETHOPRIM [Concomitant]
     Dosage: UNSPECIFIED
     Dates: start: 20030614, end: 20040716
  7. AMLODIPINE [Concomitant]
     Dosage: UNSPECIFIED
     Dates: start: 20041105
  8. ATORVASTATIN CALCIUM [Concomitant]
     Dosage: UNSPECIFIED
     Dates: start: 20031119
  9. MYCOPHENOLATE MOFETIL [Concomitant]
     Indication: PROPHYLAXIS AGAINST TRANSPLANT REJECTION
     Route: 048
     Dates: start: 20030610
  10. DACLIZUMAB [Concomitant]
     Indication: PROPHYLAXIS AGAINST TRANSPLANT REJECTION
     Dosage: 130 MG ONCE
     Route: 042
     Dates: start: 20030611, end: 20030611
  11. DACLIZUMAB [Concomitant]
     Route: 042
     Dates: start: 20030625

REACTIONS (1)
  - URETERAL NECROSIS [None]
